FAERS Safety Report 25454399 (Version 1)
Quarter: 2025Q2

REPORT INFORMATION
  Report Type: Spontaneous
  Country: ES (occurrence: ES)
  Receive Date: 20250619
  Receipt Date: 20250619
  Transmission Date: 20250717
  Serious: Yes (Hospitalization)
  Sender: ACCORD
  Company Number: None

PATIENT
  Age: 55 Year
  Sex: Male
  Weight: 60 kg

DRUGS (2)
  1. CARBOPLATIN [Suspect]
     Active Substance: CARBOPLATIN
     Indication: Laryngeal cancer
     Dates: start: 20250217, end: 20250421
  2. FLUOROURACIL [Suspect]
     Active Substance: FLUOROURACIL
     Indication: Laryngeal cancer stage IV
     Dates: start: 20250217, end: 20250421

REACTIONS (2)
  - Pneumonia pseudomonal [Recovering/Resolving]
  - Respiratory tract haemorrhage [Not Recovered/Not Resolved]

NARRATIVE: CASE EVENT DATE: 20250327
